FAERS Safety Report 5040661-X (Version None)
Quarter: 2006Q2

REPORT INFORMATION
  Report Type: 
  Country: None (occurrence: None)
  Receive Date: 20060629
  Receipt Date: 20060629
  Transmission Date: 20061013
  Serious: Yes (Hospitalization)
  Sender: FDA-Public Use
  Company Number: None

PATIENT
  Age: 74 Year
  Sex: Male
  Weight: 114.5 kg

DRUGS (2)
  1. ETOPOSIDE [Suspect]
     Dates: start: 20060606, end: 20060608
  2. CARBOPLATIN [Suspect]

REACTIONS (2)
  - FATIGUE [None]
  - PULMONARY ALVEOLAR HAEMORRHAGE [None]
